FAERS Safety Report 12897709 (Version 2)
Quarter: 2017Q1

REPORT INFORMATION
  Report Type: Spontaneous
  Country: US (occurrence: US)
  Receive Date: 20161031
  Receipt Date: 20170309
  Transmission Date: 20170428
  Serious: Yes (Other)
  Sender: FDA-Public Use
  Company Number: US-TEVA-707871USA

PATIENT
  Sex: Female
  Weight: 47.67 kg

DRUGS (2)
  1. ACETAMINOPHEN W/BUTALBITAL W/CAFFEINE [Suspect]
     Active Substance: ACETAMINOPHEN\BUTALBITAL\CAFFEINE
     Route: 065
  2. DULOXETINE. [Suspect]
     Active Substance: DULOXETINE
     Route: 065

REACTIONS (5)
  - Limb operation [Unknown]
  - Pruritus [Recovered/Resolved]
  - Coeliac disease [Unknown]
  - Burning sensation [Recovered/Resolved]
  - Rash [Recovered/Resolved]
